FAERS Safety Report 24882689 (Version 1)
Quarter: 2025Q1

REPORT INFORMATION
  Report Type: Spontaneous
  Country: ZA (occurrence: ZA)
  Receive Date: 20250124
  Receipt Date: 20250124
  Transmission Date: 20250409
  Serious: Yes (Hospitalization)
  Sender: BAYER HEALTHCARE PHARMACEUTICALS INC.
  Company Number: ZA-BAYER-2025A009174

PATIENT
  Age: 70 Year
  Sex: Female

DRUGS (30)
  1. ANGELIQ [Suspect]
     Active Substance: DROSPIRENONE\ESTRADIOL
     Dosage: UNK UNK, QD
     Route: 048
  2. CINNARIZINE [Concomitant]
     Active Substance: CINNARIZINE
     Dosage: 25 MG, TID
     Route: 048
  3. ILIADIN [Concomitant]
     Route: 045
  4. ACETAMINOPHEN\CODEINE\IBUPROFEN [Concomitant]
     Active Substance: ACETAMINOPHEN\CODEINE\IBUPROFEN
     Dosage: UNK UNK, TID
     Route: 048
  5. PROPRANOLOL HYDROCHLORIDE [Concomitant]
     Active Substance: PROPRANOLOL HYDROCHLORIDE
     Dosage: 10 MG, BID
     Route: 048
  6. FD+C RED NO. 3 [Concomitant]
     Active Substance: FD+C RED NO. 3
     Dosage: 25 MG, BID
     Route: 048
  7. ALLOPURINOL [Concomitant]
     Active Substance: ALLOPURINOL
     Dosage: 300 MG, BID
     Route: 048
  8. AMITRIPTYLINE [Concomitant]
     Active Substance: AMITRIPTYLINE
     Dosage: 25 MG, QD
     Route: 048
  9. SIMVASTATIN [Concomitant]
     Active Substance: SIMVASTATIN
     Dosage: 20 MG, QD
     Route: 048
  10. LAMOTRIGINE [Concomitant]
     Active Substance: LAMOTRIGINE
     Dosage: 25 MG, QD
     Route: 048
  11. ESOMEPRAZOLE [Concomitant]
     Active Substance: ESOMEPRAZOLE
     Dosage: 40 MG, QD
     Route: 048
  12. BISOPROLOL [Concomitant]
     Active Substance: BISOPROLOL
     Dosage: 2.5 MG, BID
     Route: 048
  13. HYDROCHLOROTHIAZIDE\VALSARTAN [Concomitant]
     Active Substance: HYDROCHLOROTHIAZIDE\VALSARTAN
     Dosage: UNK UNK, QD
     Route: 048
  14. LANSOPRAZOLE [Concomitant]
     Active Substance: LANSOPRAZOLE
     Dosage: 15 MG, QD
     Route: 048
  15. FUSIDATE SODIUM [Concomitant]
     Active Substance: FUSIDATE SODIUM
     Route: 061
  16. ACETAMINOPHEN\ORPHENADRINE CITRATE [Concomitant]
     Active Substance: ACETAMINOPHEN\ORPHENADRINE CITRATE
     Dosage: UNK UNK, QD
     Route: 048
  17. LORNOXICAM [Concomitant]
     Active Substance: LORNOXICAM
     Dosage: 8 MG, BID
     Route: 048
  18. BETAHISTINE HYDROCHLORIDE [Concomitant]
     Active Substance: BETAHISTINE HYDROCHLORIDE
     Dosage: 24 MG, QD
     Route: 048
  19. BISOPROLOL FUMARATE [Concomitant]
     Active Substance: BISOPROLOL FUMARATE
     Dosage: 5 MG, BID
     Route: 048
  20. PRED FORTE [Concomitant]
     Active Substance: PREDNISOLONE ACETATE
     Dosage: 10 MG, BID
     Route: 061
  21. K fenak [Concomitant]
     Dosage: 50 MG, TID
     Route: 048
  22. CAFFEINE\CYCLIZINE HYDROCHLORIDE\ERGOTAMINE TARTRATE [Concomitant]
     Active Substance: CAFFEINE\CYCLIZINE HYDROCHLORIDE\ERGOTAMINE TARTRATE
     Route: 048
  23. CYCLIZINE [Concomitant]
     Active Substance: CYCLIZINE
     Dosage: 50 MG, TID
     Route: 048
  24. Allergex [Concomitant]
     Dosage: 4 MG, QD
     Route: 048
  25. METHYLPREDNISOLONE ACEPONATE [Concomitant]
     Active Substance: METHYLPREDNISOLONE ACEPONATE
     Dosage: 1 MG, BID
     Route: 048
  26. PROPANTHELINE [Concomitant]
     Active Substance: PROPANTHELINE
     Dosage: 15 MG, QD
     Route: 048
  27. FAMUCAPS [Concomitant]
     Route: 048
  28. CORENZA C [Concomitant]
     Dosage: UNK UNK, TID
     Route: 048
  29. FENTICONAZOLE NITRATE [Concomitant]
     Active Substance: FENTICONAZOLE NITRATE
     Route: 067
  30. Cifran [Concomitant]
     Dosage: 500 MG, BID
     Route: 048

REACTIONS (2)
  - Dizziness [None]
  - Fall [None]
